FAERS Safety Report 23433656 (Version 1)
Quarter: 2024Q1

REPORT INFORMATION
  Report Type: Spontaneous
  Country: FR (occurrence: None)
  Receive Date: 20240123
  Receipt Date: 20240123
  Transmission Date: 20240409
  Serious: Yes (Hospitalization)
  Sender: FDA-Public Use
  Company Number: 2024A017587

PATIENT
  Age: 84 Year
  Sex: Female
  Weight: 68 kg

DRUGS (15)
  1. OMEPRAZOLE [Suspect]
     Active Substance: OMEPRAZOLE
     Indication: Product used for unknown indication
     Route: 048
     Dates: start: 20231024
  2. PREDNISOLONE SODIUM METAZOATE [Suspect]
     Active Substance: PREDNISOLONE SODIUM METAZOATE
     Indication: Lung adenocarcinoma
     Route: 048
     Dates: start: 20231024
  3. CARBOPLATIN [Suspect]
     Active Substance: CARBOPLATIN
     Indication: Lung adenocarcinoma
     Dosage: 2ND COURSE130.0MG ONCE/SINGLE ADMINISTRATION
     Route: 042
     Dates: start: 20231024, end: 20231024
  4. LENOGRASTIM [Suspect]
     Active Substance: LENOGRASTIM
     Indication: Infection prophylaxis
     Dosage: 3400 DAILY
     Route: 058
     Dates: start: 202310, end: 202310
  5. PRIMPERAN [Suspect]
     Active Substance: METOCLOPRAMIDE HYDROCHLORIDE
     Indication: Nausea
     Route: 048
     Dates: start: 20231024
  6. PALONOSETRON HYDROCHLORIDE [Suspect]
     Active Substance: PALONOSETRON HYDROCHLORIDE
     Indication: Prophylaxis of nausea and vomiting
     Dosage: 250.0UG/INHAL ONCE/SINGLE ADMINISTRATION
     Route: 042
     Dates: start: 20231024, end: 20231024
  7. NEBIVOLOL [Concomitant]
     Active Substance: NEBIVOLOL
  8. LORAZEPAM [Concomitant]
     Active Substance: LORAZEPAM
  9. VALSARTAN [Concomitant]
     Active Substance: VALSARTAN
  10. FERROUS SULFATE [Concomitant]
     Active Substance: FERROUS SULFATE
  11. HYDROCHLOROTHIAZIDE [Concomitant]
     Active Substance: HYDROCHLOROTHIAZIDE
  12. CETIRIZINE [Concomitant]
     Active Substance: CETIRIZINE HYDROCHLORIDE
     Dosage: LONG TERM USE
  13. LEVOTHYROXINE SODIUM [Concomitant]
     Active Substance: LEVOTHYROXINE SODIUM
  14. LERCANIDIPINE HYDROCHLORIDE [Concomitant]
     Active Substance: LERCANIDIPINE HYDROCHLORIDE
  15. CLONIDINE [Concomitant]
     Active Substance: CLONIDINE

REACTIONS (2)
  - General physical health deterioration [Recovering/Resolving]
  - Rash pruritic [Recovering/Resolving]

NARRATIVE: CASE EVENT DATE: 20231103
